FAERS Safety Report 18724208 (Version 2)
Quarter: 2021Q1

REPORT INFORMATION
  Report Type: Spontaneous
  Country: US (occurrence: CA)
  Receive Date: 20210111
  Receipt Date: 20210125
  Transmission Date: 20210419
  Serious: Yes (Other)
  Sender: FDA-Public Use
  Company Number: US-COVIS PHARMA B.V.-2020COV00616

PATIENT
  Age: 31 Year
  Sex: Female
  Weight: 47.62 kg

DRUGS (5)
  1. ALVESCO [Suspect]
     Active Substance: CICLESONIDE
     Dosage: 200 ?G, 2X/DAY
     Dates: start: 2020
  2. MOMETASONE FUROATE (SANDOZ) [Concomitant]
     Dosage: UNK, 2X/DAY
  3. ALVESCO [Suspect]
     Active Substance: CICLESONIDE
     Indication: DYSPNOEA
     Dosage: 200 ?G, 2X/DAY (1 PUFF IN THE MORNING AND 1 PUFF AT NIGHT)
     Dates: start: 2018, end: 2020
  4. UNSPECIFIED VITAMIN [Concomitant]
     Active Substance: VITAMINS
  5. ALVESCO [Suspect]
     Active Substance: CICLESONIDE
     Indication: LUNG DISORDER
     Dosage: 200 ?G, 2X/DAY
     Dates: start: 2020, end: 2020

REACTIONS (6)
  - Product dose omission issue [Recovered/Resolved]
  - Dyspnoea [Recovered/Resolved]
  - Product quality issue [Recovered/Resolved]
  - Flank pain [Recovered/Resolved]
  - Oxygen saturation decreased [Recovered/Resolved]
  - Menstrual disorder [Recovered/Resolved]

NARRATIVE: CASE EVENT DATE: 202012
